FAERS Safety Report 14046560 (Version 2)
Quarter: 2017Q4

REPORT INFORMATION
  Report Type: Report from Study
  Country: JP (occurrence: JP)
  Receive Date: 20171005
  Receipt Date: 20171228
  Transmission Date: 20180321
  Serious: Yes (Other)
  Sender: FDA-Public Use
  Company Number: JP-MITSUBISHI TANABE PHARMA CORPORATION-MTPC2017-0020523

PATIENT
  Age: 67 Year
  Sex: Male
  Weight: 64 kg

DRUGS (9)
  1. MECOBALAMIN [Concomitant]
     Active Substance: METHYLCOBALAMIN
     Indication: AMYOTROPHIC LATERAL SCLEROSIS
     Route: 048
  2. AMLODIPINE [Concomitant]
     Active Substance: AMLODIPINE BESYLATE
     Route: 048
  3. RILUZOLE. [Concomitant]
     Active Substance: RILUZOLE
     Indication: AMYOTROPHIC LATERAL SCLEROSIS
     Route: 048
     Dates: start: 20161215
  4. LIPIDIL [Concomitant]
     Active Substance: FENOFIBRATE
     Route: 048
  5. LYRICA [Concomitant]
     Active Substance: PREGABALIN
     Indication: AMYOTROPHIC LATERAL SCLEROSIS
     Route: 048
  6. FAMOTIDINE D [Concomitant]
     Active Substance: FAMOTIDINE
     Route: 048
  7. RADICUT [Suspect]
     Active Substance: EDARAVONE
     Indication: AMYOTROPHIC LATERAL SCLEROSIS
     Route: 041
     Dates: start: 20170312, end: 20170314
  8. ALLOPURINOL. [Concomitant]
     Active Substance: ALLOPURINOL
     Route: 048
  9. VALSARTAN. [Concomitant]
     Active Substance: VALSARTAN
     Route: 048

REACTIONS (1)
  - Renal disorder [Recovered/Resolved]

NARRATIVE: CASE EVENT DATE: 20170314
